FAERS Safety Report 26156527 (Version 1)
Quarter: 2025Q4

REPORT INFORMATION
  Report Type: Spontaneous
  Country: EU (occurrence: EU)
  Receive Date: 20251215
  Receipt Date: 20251215
  Transmission Date: 20260117
  Serious: Yes (Hospitalization, Other)
  Sender: NOVARTIS
  Company Number: EU-002147023-NVSC2025PL188286

PATIENT
  Age: 60 Year
  Sex: Male
  Weight: 53 kg

DRUGS (1)
  1. SECUKINUMAB [Suspect]
     Active Substance: SECUKINUMAB
     Indication: Ankylosing spondylitis
     Dosage: UNK
     Route: 065
     Dates: start: 20230426

REACTIONS (8)
  - Iritis [Unknown]
  - Acute myocardial infarction [Unknown]
  - Uveitis [Recovered/Resolved]
  - Laboratory test abnormal [Unknown]
  - Weight decreased [Unknown]
  - Gastrointestinal wall thickening [Unknown]
  - Gastrointestinal inflammation [Unknown]
  - Gastrointestinal infection [Recovered/Resolved]

NARRATIVE: CASE EVENT DATE: 20250101
